FAERS Safety Report 8390222-X (Version None)
Quarter: 2012Q2

REPORT INFORMATION
  Report Type: 
  Country: None (occurrence: None)
  Receive Date: 20120529
  Receipt Date: 20120523
  Transmission Date: 20120825
  Serious: Yes (Other)
  Sender: FDA-Public Use
  Company Number: US-PFIZER INC-2012125250

PATIENT
  Sex: Male
  Weight: 77.551 kg

DRUGS (1)
  1. VIAGRA [Suspect]
     Indication: PENILE VASCULAR DISORDER
     Dosage: UNK, DAILY
     Route: 048

REACTIONS (2)
  - CARDIAC DISORDER [None]
  - DRUG INEFFECTIVE [None]
